FAERS Safety Report 16879970 (Version 1)
Quarter: 2019Q4

REPORT INFORMATION
  Report Type: Report from Study
  Country: US (occurrence: US)
  Receive Date: 20191003
  Receipt Date: 20191003
  Transmission Date: 20200122
  Serious: Yes (Other)
  Sender: FDA-Public Use
  Company Number: US-AGIOS-1907US01293

PATIENT

DRUGS (1)
  1. TIBSOVO [Suspect]
     Active Substance: IVOSIDENIB
     Indication: ACUTE MYELOID LEUKAEMIA
     Dosage: 250 MILLIGRAM, BID
     Route: 048
     Dates: start: 20190622

REACTIONS (2)
  - Urinary tract infection [Not Recovered/Not Resolved]
  - Arthritis infective [Not Recovered/Not Resolved]
